FAERS Safety Report 13025768 (Version 5)
Quarter: 2017Q1

REPORT INFORMATION
  Report Type: Spontaneous
  Country: JP (occurrence: JP)
  Receive Date: 20161214
  Receipt Date: 20170331
  Transmission Date: 20170428
  Serious: Yes (Death, Life-Threatening, Hospitalization, Other)
  Sender: FDA-Public Use
  Company Number: JP-009507513-1612JPN004763

PATIENT
  Age: 84 Year
  Sex: Male
  Weight: 60 kg

DRUGS (6)
  1. BENZALIN [Suspect]
     Active Substance: NITRAZEPAM
     Indication: INSOMNIA
     Dosage: 10 MG, QD
     Route: 048
     Dates: end: 20160906
  2. BENZALIN [Suspect]
     Active Substance: NITRAZEPAM
     Dosage: 15 MG, QD
     Route: 048
     Dates: start: 20160909, end: 20161025
  3. BELSOMRA [Suspect]
     Active Substance: SUVOREXANT
     Indication: INSOMNIA
     Dosage: 15 MG, QD
     Route: 048
     Dates: start: 20160907, end: 20160908
  4. BELSOMRA [Suspect]
     Active Substance: SUVOREXANT
     Dosage: 15 MG, QD
     Route: 048
     Dates: start: 20161026, end: 201611
  5. ZOLPIDEM TARTRATE. [Suspect]
     Active Substance: ZOLPIDEM TARTRATE
     Indication: INSOMNIA
     Dosage: UNK, QD
     Route: 048
  6. NEUROTROPIN [Concomitant]
     Active Substance: NEUROTROPIN
     Indication: ANALGESIC THERAPY
     Dosage: 8 IU, BID
     Route: 048
     Dates: start: 20160824, end: 201611

REACTIONS (8)
  - Dyskinesia [Not Recovered/Not Resolved]
  - Neuroleptic malignant syndrome [Fatal]
  - Pneumonia aspiration [Fatal]
  - Hepatic function abnormal [Not Recovered/Not Resolved]
  - Dizziness [Unknown]
  - Muscle rigidity [Not Recovered/Not Resolved]
  - Epilepsy [Not Recovered/Not Resolved]
  - Atrial fibrillation [Unknown]

NARRATIVE: CASE EVENT DATE: 20161103
